FAERS Safety Report 10379028 (Version 1)
Quarter: 2014Q3

REPORT INFORMATION
  Report Type: Spontaneous
  Country: US (occurrence: None)
  Receive Date: 20140811
  Receipt Date: 20140811
  Transmission Date: 20150326
  Serious: Yes (Disabling, Other)
  Sender: FDA-Public Use
  Company Number: None

PATIENT
  Age: 79 Year
  Sex: Female
  Weight: 68.04 kg

DRUGS (1)
  1. FLUTICASONE PROPIONATE. [Suspect]
     Active Substance: FLUTICASONE PROPIONATE
     Indication: NASOPHARYNGITIS
     Dates: start: 20140430, end: 20140804

REACTIONS (10)
  - Sinus disorder [None]
  - Dry throat [None]
  - Dysphonia [None]
  - Depression [None]
  - Ageusia [None]
  - Cough [None]
  - Throat irritation [None]
  - Anosmia [None]
  - Inflammation [None]
  - Frustration [None]

NARRATIVE: CASE EVENT DATE: 20140430
